FAERS Safety Report 5913499-6 (Version None)
Quarter: 2008Q4

REPORT INFORMATION
  Report Type: 
  Country: None (occurrence: None)
  Receive Date: 20081008
  Receipt Date: 20081008
  Transmission Date: 20090506
  Serious: Yes (Other)
  Sender: FDA-Public Use
  Company Number: None

PATIENT
  Age: 44 Year
  Sex: Female
  Weight: 77.1115 kg

DRUGS (2)
  1. BUPROPION HCL [Suspect]
     Indication: DEPRESSION
     Dosage: 2 TABLETS TWICE DAILY PO
     Route: 048
  2. TRAZODONE HCL [Suspect]
     Indication: INSOMNIA
     Dosage: 2 TABLETS AT BEDTIME PO
     Route: 048

REACTIONS (11)
  - DIARRHOEA [None]
  - DIZZINESS [None]
  - DRY MOUTH [None]
  - FATIGUE [None]
  - FEELING ABNORMAL [None]
  - HALLUCINATION [None]
  - HEART RATE INCREASED [None]
  - HYPERHIDROSIS [None]
  - NAUSEA [None]
  - NERVOUSNESS [None]
  - TREMOR [None]
